FAERS Safety Report 7272651-0 (Version None)
Quarter: 2011Q1

REPORT INFORMATION
  Report Type: 
  Country: None (occurrence: None)
  Receive Date: 20110203
  Receipt Date: 20110124
  Transmission Date: 20110831
  Serious: Yes (Life-Threatening, Other)
  Sender: FDA-Public Use
  Company Number: JP-BRISTOL-MYERS SQUIBB COMPANY-15491897

PATIENT
  Age: 32 Year
  Sex: Male

DRUGS (2)
  1. ABILIFY [Suspect]
     Indication: SCHIZOPHRENIA
     Route: 048
  2. ELECTROCONVULSIVE THERAPY [Concomitant]

REACTIONS (2)
  - SUICIDE ATTEMPT [None]
  - SCHIZOPHRENIA [None]
